FAERS Safety Report 18901600 (Version 3)
Quarter: 2024Q1

REPORT INFORMATION
  Report Type: Spontaneous
  Country: IT (occurrence: IT)
  Receive Date: 20210217
  Receipt Date: 20240102
  Transmission Date: 20240410
  Serious: Yes (Death, Life-Threatening, Hospitalization, Other)
  Sender: FDA-Public Use
  Company Number: IT-AUROBINDO-AUR-APL-2021-006397

PATIENT
  Age: 42 Year
  Sex: Male

DRUGS (5)
  1. ENTECAVIR [Suspect]
     Active Substance: ENTECAVIR
     Indication: Hepatitis B
     Dosage: 0.5 MILLIGRAM, DAILY
     Route: 065
  2. MYCOPHENOLATE MOFETIL [Suspect]
     Active Substance: MYCOPHENOLATE MOFETIL
     Indication: Condition aggravated
     Dosage: 1000 MILLIGRAM, TWO TIMES A DAY
     Route: 065
  3. PEMBROLIZUMAB [Suspect]
     Active Substance: PEMBROLIZUMAB
     Indication: Thymoma malignant
     Dosage: 2 MILLIGRAM/KILOGRAM, EVERY 21 DAYS
     Route: 065
  4. PEMBROLIZUMAB [Suspect]
     Active Substance: PEMBROLIZUMAB
     Indication: Thymoma
  5. METHYLPREDNISOLONE [Concomitant]
     Active Substance: METHYLPREDNISOLONE
     Indication: Product used for unknown indication
     Dosage: 1 MILLIGRAM/KILOGRAM, ONCE A DAY
     Route: 065

REACTIONS (10)
  - Immune-mediated hepatitis [Fatal]
  - Multiple organ dysfunction syndrome [Fatal]
  - Hepatotoxicity [Unknown]
  - Thrombocytopenia [Not Recovered/Not Resolved]
  - Thyroid disorder [Unknown]
  - Lymphocytosis [Recovered/Resolved]
  - Immune-mediated thyroiditis [Unknown]
  - Hepatorenal syndrome [Unknown]
  - Drug ineffective [Unknown]
  - Off label use [Unknown]
